FAERS Safety Report 24923288 (Version 2)
Quarter: 2025Q1

REPORT INFORMATION
  Report Type: Spontaneous
  Country: US (occurrence: US)
  Receive Date: 20250204
  Receipt Date: 20250317
  Transmission Date: 20250409
  Serious: No
  Sender: ROCHE
  Company Number: US-ROCHE-10000197259

PATIENT
  Sex: Female

DRUGS (2)
  1. XOLAIR PFS [Suspect]
     Active Substance: OMALIZUMAB
     Indication: Idiopathic urticaria
     Dosage: STRENGHT 150 MG/ML (SD PFS), 07-FEB-2025 LAST INJECTION TAKEN.
     Route: 058
     Dates: start: 202410, end: 20250207
  2. XOLAIR PFS [Suspect]
     Active Substance: OMALIZUMAB

REACTIONS (9)
  - Hypersomnia [Unknown]
  - Stress fracture [Unknown]
  - Dermatitis [Unknown]
  - Fatigue [Unknown]
  - Weight increased [Unknown]
  - Arthralgia [Unknown]
  - Arthralgia [Unknown]
  - Pain in extremity [Unknown]
  - Arthritis [Unknown]
